FAERS Safety Report 20741166 (Version 1)
Quarter: 2022Q2

REPORT INFORMATION
  Report Type: Spontaneous
  Country: NL (occurrence: NL)
  Receive Date: 20220422
  Receipt Date: 20220422
  Transmission Date: 20220721
  Serious: Yes (Other)
  Sender: FDA-Public Use
  Company Number: NL-GW PHARMA-2022-NL-012308

PATIENT
  Age: 17 Year
  Sex: Male
  Weight: 53 kg

DRUGS (1)
  1. EPIDIOLEX [Suspect]
     Active Substance: CANNABIDIOL
     Indication: Epilepsy
     Dosage: 20-30 MILLIGRAM/KILOGRAM/DAY DIVIDED IN BID
     Route: 048

REACTIONS (1)
  - Tonic convulsion [Unknown]
